FAERS Safety Report 16694365 (Version 4)
Quarter: 2019Q3

REPORT INFORMATION
  Report Type: Spontaneous
  Country: US (occurrence: US)
  Receive Date: 20190812
  Receipt Date: 20190911
  Transmission Date: 20191004
  Serious: No
  Sender: FDA-Public Use
  Company Number: US-PFIZER INC-2019342183

PATIENT
  Age: 37 Year
  Sex: Male
  Weight: 87.54 kg

DRUGS (2)
  1. PROTONIX [Suspect]
     Active Substance: PANTOPRAZOLE SODIUM
     Dosage: 40 MG, 2X/DAY (2 PACKETS DAILY; A PACK IN THE MORNING AND A PACK AT NIGHT)
     Dates: start: 201906
  2. PROTONIX [Suspect]
     Active Substance: PANTOPRAZOLE SODIUM
     Indication: GASTROOESOPHAGEAL REFLUX DISEASE
     Dosage: 40 MG, 1X/DAY (1 PACKET A DAY)
     Dates: end: 201906

REACTIONS (2)
  - Throat tightness [Unknown]
  - Off label use [Unknown]
